FAERS Safety Report 12201485 (Version 2)
Quarter: 2018Q1

REPORT INFORMATION
  Report Type: Spontaneous
  Country: US (occurrence: US)
  Receive Date: 20160322
  Receipt Date: 20180319
  Transmission Date: 20180508
  Serious: No
  Sender: FDA-Public Use
  Company Number: US-SA-2015SA147915

PATIENT
  Age: 68 Year
  Sex: Female

DRUGS (2)
  1. NASACORT ALLERGY 24HR [Suspect]
     Active Substance: TRIAMCINOLONE ACETONIDE
     Indication: NASAL CONGESTION
     Dosage: 1 PUMP (1 OR 2 PUMPS ONLYONE OCCASION)
     Route: 045
     Dates: start: 20151020, end: 20151020
  2. NASACORT ALLERGY 24HR [Suspect]
     Active Substance: TRIAMCINOLONE ACETONIDE
     Indication: NASAL CONGESTION
     Dosage: DOSE: 2 SPRAYS IN EACH NOSTRIL.
     Route: 045
     Dates: start: 20150921, end: 20150921

REACTIONS (3)
  - Drug ineffective [Unknown]
  - Sneezing [Recovered/Resolved]
  - Condition aggravated [Recovered/Resolved]

NARRATIVE: CASE EVENT DATE: 20151020
